FAERS Safety Report 21718411 (Version 1)
Quarter: 2022Q4

REPORT INFORMATION
  Report Type: Report from Study
  Country: US (occurrence: US)
  Receive Date: 20221212
  Receipt Date: 20221212
  Transmission Date: 20230113
  Serious: No
  Sender: FDA-Public Use
  Company Number: US-ABBVIE-4214411

PATIENT
  Sex: Male

DRUGS (4)
  1. SKYRIZI [Suspect]
     Active Substance: RISANKIZUMAB-RZAA
     Indication: Psoriasis
     Route: 058
     Dates: start: 20211104
  2. MINOCIN CAP 100MG [Concomitant]
     Indication: Product used for unknown indication
  3. DAPSONE GEL 5%; [Concomitant]
     Indication: Product used for unknown indication
  4. DUOBRII LOT [Concomitant]
     Indication: Product used for unknown indication

REACTIONS (2)
  - Mood swings [Not Recovered/Not Resolved]
  - Fatigue [Not Recovered/Not Resolved]
